FAERS Safety Report 10650679 (Version 9)
Quarter: 2015Q2

REPORT INFORMATION
  Report Type: Spontaneous
  Country: US (occurrence: US)
  Receive Date: 20141214
  Receipt Date: 20150508
  Transmission Date: 20150821
  Serious: Yes (Life-Threatening, Hospitalization, Other)
  Sender: FDA-Public Use
  Company Number: PHHY2014US162084

PATIENT
  Sex: Female

DRUGS (39)
  1. BACLOFEN INTRATHECAL [Suspect]
     Active Substance: BACLOFEN
     Dosage: 37.66 UG, PER DAY (INCREASED ACTIVATED DOSE)
     Route: 037
     Dates: start: 20150316
  2. HYDROXYZINE HYDROCHLORIDE. [Suspect]
     Active Substance: HYDROXYZINE HYDROCHLORIDE
     Indication: PRODUCT USED FOR UNKNOWN INDICATION
     Route: 065
  3. SPIRONOLACTONE. [Suspect]
     Active Substance: SPIRONOLACTONE
     Indication: PRODUCT USED FOR UNKNOWN INDICATION
     Route: 065
  4. PRIALT [Suspect]
     Active Substance: ZICONOTIDE ACETATE
     Indication: SPINAL PAIN
     Dosage: 3 UG, PER DAY (CONC. 10 (UNIT NOT REPORTED))
     Route: 037
     Dates: start: 20130404
  5. ATIVAN [Suspect]
     Active Substance: LORAZEPAM
     Indication: PRODUCT USED FOR UNKNOWN INDICATION
     Route: 048
  6. BACLOFEN INTRATHECAL [Suspect]
     Active Substance: BACLOFEN
     Indication: SPINAL PAIN
     Dosage: 36 UG, QD (120 (UNIT NOT REPORTED))
     Route: 037
     Dates: start: 20140324
  7. GLYCERYL TRINITRATE [Suspect]
     Active Substance: NITROGLYCERIN
     Indication: PRODUCT USED FOR UNKNOWN INDICATION
     Route: 065
  8. LORAZEPAM. [Suspect]
     Active Substance: LORAZEPAM
     Indication: PRODUCT USED FOR UNKNOWN INDICATION
     Route: 065
  9. BUPIVACAINE [Suspect]
     Active Substance: BUPIVACAINE
     Dosage: 3.909 MG, PER DAY (CONC 30 MG/ML)
     Route: 037
     Dates: start: 20150312
  10. SUFENTANIL [Suspect]
     Active Substance: SUFENTANIL
     Dosage: 10.660 UG, PER DAY (CONC. 30 MCG/ML)
     Route: 037
     Dates: start: 20150312
  11. FENTANYL. [Suspect]
     Active Substance: FENTANYL
     Indication: PRODUCT USED FOR UNKNOWN INDICATION
     Route: 037
  12. ZOLPIDEM [Suspect]
     Active Substance: ZOLPIDEM\ZOLPIDEM TARTRATE
     Indication: PRODUCT USED FOR UNKNOWN INDICATION
     Route: 065
  13. VYTORIN [Suspect]
     Active Substance: EZETIMIBE\SIMVASTATIN
     Indication: PRODUCT USED FOR UNKNOWN INDICATION
     Route: 065
  14. LASIX [Suspect]
     Active Substance: FUROSEMIDE
     Indication: PRODUCT USED FOR UNKNOWN INDICATION
     Route: 065
  15. SUFENTANIL [Suspect]
     Active Substance: SUFENTANIL
     Dosage: 9.720 UG, PER DAY
     Route: 037
  16. BACLOFEN INTRATHECAL [Suspect]
     Active Substance: BACLOFEN
     Dosage: 32.71 UG, ACTIVATED DOSE
     Route: 037
  17. BACLOFEN INTRATHECAL [Suspect]
     Active Substance: BACLOFEN
     Dosage: 356.7 UG, QD (CONCENTRATION 1000 MCG/ML)
     Route: 037
  18. POTASSIUM CHLORIDE. [Suspect]
     Active Substance: POTASSIUM CHLORIDE
     Indication: PRODUCT USED FOR UNKNOWN INDICATION
     Route: 065
  19. DICYCLOMINE [Suspect]
     Active Substance: DICYCLOMINE HYDROCHLORIDE
     Indication: PRODUCT USED FOR UNKNOWN INDICATION
     Route: 065
  20. BUPIVACAINE [Suspect]
     Active Substance: BUPIVACAINE
     Indication: PRODUCT USED FOR UNKNOWN INDICATION
     Dosage: 1.8 MG, PER DAY (6, (UNIT NOT REPORTED))
     Route: 037
     Dates: start: 20131230
  21. BUPIVACAINE [Suspect]
     Active Substance: BUPIVACAINE
     Dosage: 3.909 UG, PER DAY (CONC 3.8 MCG/ML)
     Route: 037
  22. BUPIVACAINE [Suspect]
     Active Substance: BUPIVACAINE
     Dosage: 0.564 MG, INCREASED ACTIVATED DOSE
     Route: 037
     Dates: start: 20150316
  23. VALIUM [Suspect]
     Active Substance: DIAZEPAM
     Indication: PRODUCT USED FOR UNKNOWN INDICATION
     Dosage: IN THE EVENING
     Route: 065
  24. BACLOFEN INTRATHECAL [Suspect]
     Active Substance: BACLOFEN
     Dosage: 242.99 UG, PER DAY (CONC. 250MCG/ML)
     Route: 037
  25. CYCLOBENZAPRINE HYDROCHLORIDE. [Suspect]
     Active Substance: CYCLOBENZAPRINE HYDROCHLORIDE
     Indication: PRODUCT USED FOR UNKNOWN INDICATION
     Route: 065
  26. BUPIVACAINE [Suspect]
     Active Substance: BUPIVACAINE
     Dosage: 0.490 MG, ACTIVATED DOSE
     Route: 037
  27. SUFENTANIL [Suspect]
     Active Substance: SUFENTANIL
     Dosage: 1.335 UG, ACTIVATED DOSE
     Route: 037
  28. SUFENTANIL [Suspect]
     Active Substance: SUFENTANIL
     Dosage: 1.537 UG, INCREASED ACTIVATED DOSE
     Route: 037
     Dates: start: 20150316
  29. ZOFRAN [Suspect]
     Active Substance: ONDANSETRON HYDROCHLORIDE
     Dosage: TOOK THREE
     Route: 065
     Dates: start: 20150319
  30. BACLOFEN INTRATHECAL [Suspect]
     Active Substance: BACLOFEN
     Dosage: 261.18 UG, PER DAY (CONC 735 MCG/ML)
     Route: 037
     Dates: start: 20150312
  31. ACETYLSALICYLIC ACID [Suspect]
     Active Substance: ASPIRIN
     Indication: PRODUCT USED FOR UNKNOWN INDICATION
     Route: 065
  32. PRIALT [Suspect]
     Active Substance: ZICONOTIDE ACETATE
     Dosage: 2.8 UG, QD
     Route: 037
  33. BACLOFEN INTRATHECAL [Suspect]
     Active Substance: BACLOFEN
     Dosage: 251 UG, PER DAY (CONC. 250MCG/ML)
     Route: 037
  34. TRAMADOL [Suspect]
     Active Substance: TRAMADOL
     Indication: PRODUCT USED FOR UNKNOWN INDICATION
     Dosage: IN THE EVENING
     Route: 065
  35. BUPIVACAINE [Suspect]
     Active Substance: BUPIVACAINE
     Dosage: 3.6934 UG, PER DAY (CONC 3.8 MCG/ML)
     Route: 037
  36. BUPIVACAINE [Suspect]
     Active Substance: BUPIVACAINE
     Dosage: 5.35 MG, QD (CONCENTRATION 15 MG/ML)
     Route: 037
  37. SUFENTANIL [Suspect]
     Active Substance: SUFENTANIL
     Indication: PRODUCT USED FOR UNKNOWN INDICATION
     Dosage: 10.660 UG, PER DAY (10 MCG/ML)
     Route: 037
  38. DILAUDID [Suspect]
     Active Substance: HYDROMORPHONE HYDROCHLORIDE
     Indication: PRODUCT USED FOR UNKNOWN INDICATION
     Dosage: 2 MG, UNK
     Route: 042
  39. ZOFRAN [Suspect]
     Active Substance: ONDANSETRON HYDROCHLORIDE
     Indication: PRODUCT USED FOR UNKNOWN INDICATION
     Route: 065

REACTIONS (23)
  - Tongue coated [Unknown]
  - Abdominal pain [Unknown]
  - Implant site swelling [Unknown]
  - Mental disorder [Recovered/Resolved]
  - Feeling abnormal [Recovered/Resolved]
  - Pain [Recovered/Resolved]
  - Dysgeusia [Unknown]
  - Inflammation [Recovered/Resolved]
  - Tongue ulceration [Unknown]
  - Muscle spasms [Unknown]
  - Adverse drug reaction [Recovered/Resolved]
  - Muscle spasticity [Recovered/Resolved]
  - Aphasia [Recovered/Resolved]
  - Nausea [Unknown]
  - Malaise [Unknown]
  - No therapeutic response [Unknown]
  - Sciatica [Recovered/Resolved]
  - Seizure [Unknown]
  - Coma [Unknown]
  - Neuralgia [Unknown]
  - Therapeutic response decreased [Recovered/Resolved]
  - Groin pain [Recovered/Resolved]
  - Pelvic pain [Unknown]
